FAERS Safety Report 10912852 (Version 1)
Quarter: 2015Q1

REPORT INFORMATION
  Report Type: Spontaneous
  Country: US (occurrence: None)
  Receive Date: 20150310
  Receipt Date: 20150310
  Transmission Date: 20150721
  Serious: Yes (Other)
  Sender: FDA-Public Use
  Company Number: BD-2015-0217

PATIENT
  Age: 18 Year
  Sex: Female
  Weight: 53 kg

DRUGS (4)
  1. MORPHINE SULFATE (MORPHINE SULFATE) UNKNOWN [Suspect]
     Active Substance: MORPHINE SULFATE
     Indication: PRODUCT USED FOR UNKNOWN INDICATION
  2. FENTANYL. [Concomitant]
     Active Substance: FENTANYL
  3. PROPOFOL. [Concomitant]
     Active Substance: PROPOFOL
  4. MIDAZOLAM [Suspect]
     Active Substance: MIDAZOLAM\MIDAZOLAM HYDROCHLORIDE

REACTIONS (2)
  - Apnoea [None]
  - Obstructive airways disorder [None]
